FAERS Safety Report 22207816 (Version 1)
Quarter: 2023Q2

REPORT INFORMATION
  Report Type: Spontaneous
  Country: CA (occurrence: CA)
  Receive Date: 20230413
  Receipt Date: 20230413
  Transmission Date: 20230722
  Serious: Yes (Disabling)
  Sender: FDA-Public Use
  Company Number: CA-Covis Pharma Europe B.V.-2023COV00854

PATIENT
  Age: 1 Year
  Sex: Male

DRUGS (2)
  1. ALVESCO [Suspect]
     Active Substance: CICLESONIDE
     Indication: Dyspnoea
     Dosage: 200.0 MICROGRAM 1 EVERY 1 DAYS
     Route: 055
  2. ALVESCO [Suspect]
     Active Substance: CICLESONIDE
     Indication: Cough

REACTIONS (3)
  - Regurgitation [Unknown]
  - Vomiting [Unknown]
  - Off label use [Unknown]
